FAERS Safety Report 6758831-9 (Version None)
Quarter: 2010Q2

REPORT INFORMATION
  Report Type: 
  Country: None (occurrence: None)
  Receive Date: 20100607
  Receipt Date: 20100528
  Transmission Date: 20101027
  Serious: Yes (Other)
  Sender: FDA-Public Use
  Company Number: GXKR2010GB06021

PATIENT
  Sex: Male

DRUGS (4)
  1. AMOXICILLIN [Suspect]
     Indication: INFECTION
     Dosage: ONCE DAILY
     Route: 065
  2. AMOXICILLIN [Interacting]
     Dosage: THREE TIMES DAILY
     Route: 065
  3. PHENOXYMETHYLPENICILLIN [Interacting]
     Route: 065
  4. WARFARIN SODIUM [Interacting]
     Indication: ATRIAL FIBRILLATION
     Route: 065

REACTIONS (2)
  - DRUG INTERACTION [None]
  - THERAPEUTIC RESPONSE DECREASED [None]
